FAERS Safety Report 4883214-6 (Version None)
Quarter: 2006Q1

REPORT INFORMATION
  Report Type: 
  Country: None (occurrence: None)
  Receive Date: 20060118
  Receipt Date: 20060106
  Transmission Date: 20060701
  Serious: Yes (Hospitalization)
  Sender: FDA-Public Use
  Company Number: FR-JNJFOC-20040200183

PATIENT
  Sex: Female
  Weight: 63.3 kg

DRUGS (11)
  1. RISPERDAL CONSTA [Suspect]
     Route: 030
  2. RISPERDAL CONSTA [Suspect]
     Route: 030
  3. RISPERIDONE [Concomitant]
     Route: 048
  4. RISPERIDONE [Concomitant]
     Route: 048
  5. RISPERIDONE [Concomitant]
     Route: 048
  6. DEROXAT [Concomitant]
     Route: 065
  7. DEROXAT [Concomitant]
     Route: 065
  8. DEROXAT [Concomitant]
     Indication: DEPRESSION
     Route: 065
  9. ZOLPIDEM TARTRATE [Concomitant]
     Indication: INSOMNIA
     Route: 065
  10. LEPTICUR [Concomitant]
  11. SULFARLEM [Concomitant]

REACTIONS (5)
  - AUTOMATISM [None]
  - DELUSION [None]
  - EXTRAPYRAMIDAL DISORDER [None]
  - GAMMA-GLUTAMYLTRANSFERASE INCREASED [None]
  - HALLUCINATION, AUDITORY [None]
